FAERS Safety Report 21185778 (Version 2)
Quarter: 2022Q3

REPORT INFORMATION
  Report Type: Report from Study
  Country: US (occurrence: US)
  Receive Date: 20220808
  Receipt Date: 20220930
  Transmission Date: 20221027
  Serious: No
  Sender: FDA-Public Use
  Company Number: US-SA-SAC20220607001001

PATIENT
  Age: 54 Year
  Sex: Female

DRUGS (9)
  1. TERIFLUNOMIDE [Suspect]
     Active Substance: TERIFLUNOMIDE
     Indication: Multiple sclerosis
     Dosage: 14 MG, QD
     Route: 048
     Dates: start: 20220314
  2. ASPIRIN [Concomitant]
     Active Substance: ASPIRIN
  3. GABAPENTIN [Concomitant]
     Active Substance: GABAPENTIN
  4. HYDROCHLOROTHIAZIDE\TRIAMTERENE [Concomitant]
     Active Substance: HYDROCHLOROTHIAZIDE\TRIAMTERENE
  5. CYCLOBENZAPRINE [Concomitant]
     Active Substance: CYCLOBENZAPRINE
  6. LOSARTAN [Concomitant]
     Active Substance: LOSARTAN
  7. TRAMADOL [Concomitant]
     Active Substance: TRAMADOL
  8. VITAMIN D NOS [Concomitant]
     Active Substance: VITAMIN D NOS
  9. MELATONIN GUMMIES [Concomitant]

REACTIONS (10)
  - Musculoskeletal stiffness [Not Recovered/Not Resolved]
  - Abdominal discomfort [Not Recovered/Not Resolved]
  - COVID-19 [Not Recovered/Not Resolved]
  - Throat clearing [Unknown]
  - Constipation [Not Recovered/Not Resolved]
  - Fatigue [Not Recovered/Not Resolved]
  - Muscle spasms [Not Recovered/Not Resolved]
  - Blood pressure increased [Not Recovered/Not Resolved]
  - Alopecia [Not Recovered/Not Resolved]
  - Diarrhoea [Not Recovered/Not Resolved]

NARRATIVE: CASE EVENT DATE: 20220101
